FAERS Safety Report 7394074-6 (Version None)
Quarter: 2011Q2

REPORT INFORMATION
  Report Type: 
  Country: None (occurrence: None)
  Receive Date: 20110405
  Receipt Date: 20110330
  Transmission Date: 20111010
  Serious: No
  Sender: FDA-Public Use
  Company Number: US-PFIZER INC-2010087783

PATIENT
  Sex: Female
  Weight: 81.6 kg

DRUGS (4)
  1. ZOLOFT [Suspect]
     Indication: DEPRESSION
     Dosage: 100 MG, DAILY
     Dates: start: 20100101, end: 20100101
  2. XANAX [Concomitant]
     Dosage: 0.25 MG, 4X/DAY
  3. PRISTIQ [Suspect]
     Indication: DEPRESSION
     Dosage: 50 MG, DAILY
     Dates: start: 20100616
  4. WELLBUTRIN [Concomitant]
     Dosage: UNK

REACTIONS (5)
  - EYE PAIN [None]
  - TREMOR [None]
  - CRYING [None]
  - DRUG ADMINISTRATION ERROR [None]
  - RESTLESSNESS [None]
